FAERS Safety Report 5333148-8 (Version None)
Quarter: 2007Q2

REPORT INFORMATION
  Report Type: 
  Country: None (occurrence: None)
  Receive Date: 20070521
  Receipt Date: 20070521
  Transmission Date: 20071010
  Serious: Yes (Other)
  Sender: FDA-Public Use
  Company Number: None

PATIENT
  Age: 57 Year
  Sex: Female
  Weight: 115.6672 kg

DRUGS (1)
  1. CLONAZEPAM [Suspect]
     Indication: FLASHBACK
     Dosage: 0.125 MG 1 X AT BEDTIME PO
     Route: 048
     Dates: start: 19891201

REACTIONS (15)
  - ANXIETY [None]
  - BALANCE DISORDER [None]
  - BURNING SENSATION [None]
  - DIZZINESS [None]
  - DYSPNOEA [None]
  - FATIGUE [None]
  - FEAR [None]
  - FLUSHING [None]
  - HYPERVENTILATION [None]
  - NAUSEA [None]
  - PALPITATIONS [None]
  - PANIC ATTACK [None]
  - SLEEP DISORDER [None]
  - SOMNOLENCE [None]
  - VISION BLURRED [None]
